FAERS Safety Report 18626551 (Version 1)
Quarter: 2020Q4

REPORT INFORMATION
  Report Type: Spontaneous
  Country: FR (occurrence: FR)
  Receive Date: 20201217
  Receipt Date: 20201217
  Transmission Date: 20210114
  Serious: Yes (Other)
  Sender: FDA-Public Use
  Company Number: FR-ABBVIE-20P-056-3693465-00

PATIENT
  Age: 8 Year
  Sex: Female
  Weight: 38 kg

DRUGS (1)
  1. ENANTONE LP [Suspect]
     Active Substance: LEUPROLIDE ACETATE
     Indication: PRECOCIOUS PUBERTY
     Dosage: Q3MONTHS
     Route: 030
     Dates: start: 20180309, end: 20190904

REACTIONS (3)
  - Frontal lobe epilepsy [Recovering/Resolving]
  - Insomnia [Recovering/Resolving]
  - Nervousness [Recovering/Resolving]

NARRATIVE: CASE EVENT DATE: 20180310
